FAERS Safety Report 22141095 (Version 3)
Quarter: 2023Q1

REPORT INFORMATION
  Report Type: Report from Study
  Country: BR (occurrence: None)
  Receive Date: 20230327
  Receipt Date: 20230331
  Transmission Date: 20230418
  Serious: Yes (Hospitalization)
  Sender: FDA-Public Use
  Company Number: BR-Eisai Medical Research-EC-2023-137043

PATIENT
  Age: 65 Year
  Sex: Male
  Weight: 53.7 kg

DRUGS (13)
  1. LENVATINIB [Suspect]
     Active Substance: LENVATINIB
     Indication: Renal cell carcinoma
     Dosage: STARTING DOSE 20 MG, QD; FLUCTUATED DOSE
     Route: 048
     Dates: start: 20220401, end: 20230320
  2. PEMBROLIZUMAB [Suspect]
     Active Substance: PEMBROLIZUMAB
     Indication: Renal cell carcinoma
     Route: 041
     Dates: start: 20220401, end: 20230315
  3. BELZUTIFAN [Suspect]
     Active Substance: BELZUTIFAN
     Indication: Renal cell carcinoma
     Dosage: STARTING DOSE 120 MG, FLUCTUATED DOSE
     Route: 048
     Dates: start: 20220401, end: 20230320
  4. MORPHINE [Concomitant]
     Active Substance: MORPHINE
     Dates: start: 201701
  5. LOSARTAN POTASSIUM [Concomitant]
     Active Substance: LOSARTAN POTASSIUM
     Dates: start: 201701
  6. GLYBURIDE [Concomitant]
     Active Substance: GLYBURIDE
     Dates: start: 201701
  7. UREA [Concomitant]
     Active Substance: UREA
     Dates: start: 20220504
  8. LACTIC ACID [Concomitant]
     Active Substance: LACTIC ACID
     Dates: start: 20220504
  9. AMITRIPTYLINE HYDROCHLORIDE [Concomitant]
     Active Substance: AMITRIPTYLINE HYDROCHLORIDE
     Dates: start: 20220928
  10. OMEPRAZOLE [Concomitant]
     Active Substance: OMEPRAZOLE
     Dates: start: 20221116
  11. CODEINE [Concomitant]
     Active Substance: CODEINE
     Dates: start: 20230201
  12. DIPYRONE [Concomitant]
     Active Substance: DIPYRONE
     Dates: start: 20230201
  13. DEXAMETHASONE [Concomitant]
     Active Substance: DEXAMETHASONE
     Dates: start: 20230222

REACTIONS (1)
  - Acute myocardial infarction [Not Recovered/Not Resolved]

NARRATIVE: CASE EVENT DATE: 20230320
